FAERS Safety Report 6328695-6 (Version None)
Quarter: 2009Q3

REPORT INFORMATION
  Report Type: 
  Country: None (occurrence: None)
  Receive Date: 20090826
  Receipt Date: 20090820
  Transmission Date: 20100115
  Serious: Yes (Hospitalization, Other)
  Sender: FDA-Public Use
  Company Number: PHHY2009AR35295

PATIENT
  Sex: Female

DRUGS (1)
  1. DIOVAN [Suspect]
     Indication: HYPERTENSION
     Dosage: 1 DF (80 MG) DAILY
     Dates: start: 20040101, end: 20080402

REACTIONS (2)
  - GUILLAIN-BARRE SYNDROME [None]
  - MYOCLONUS [None]
